FAERS Safety Report 6278937-0 (Version None)
Quarter: 2009Q3

REPORT INFORMATION
  Report Type: 
  Country: None (occurrence: None)
  Receive Date: 20090723
  Receipt Date: 20090716
  Transmission Date: 20100115
  Serious: Yes (Congenital Anomaly)
  Sender: FDA-Public Use
  Company Number: PL-JNJFOC-20090705996

PATIENT

DRUGS (1)
  1. CILEST [Suspect]
     Indication: DRUG EXPOSURE DURING PREGNANCY

REACTIONS (1)
  - CONGENITAL MITOCHONDRIAL CYTOPATHY [None]
